FAERS Safety Report 4708557-8 (Version None)
Quarter: 2005Q3

REPORT INFORMATION
  Report Type: 
  Country: None (occurrence: None)
  Receive Date: 20050706
  Receipt Date: 20050623
  Transmission Date: 20060218
  Serious: Yes (Other)
  Sender: FDA-Public Use
  Company Number: 2005080957

PATIENT
  Age: 44 Year
  Sex: Female
  Weight: 117.028 kg

DRUGS (8)
  1. CELEBREX [Suspect]
     Indication: RHEUMATOID ARTHRITIS
     Dosage: 400 MG (200 MG, 2 IN 1 D), ORAL
     Route: 048
     Dates: start: 19950101
  2. NEURONTIN [Suspect]
     Indication: RHEUMATOID ARTHRITIS
  3. ACCUPRIL [Suspect]
     Indication: HYPERTENSION
  4. AMBIEN [Concomitant]
  5. EFFEXOR [Concomitant]
  6. OXYCONTIN [Concomitant]
  7. MAXZIDE [Concomitant]
  8. POTASSIUM (POTASSIUM) [Concomitant]

REACTIONS (4)
  - BLOOD CHOLESTEROL INCREASED [None]
  - GASTRIC ULCER [None]
  - HYPERTENSION [None]
  - INTERVERTEBRAL DISC PROTRUSION [None]
